FAERS Safety Report 7573398-3 (Version None)
Quarter: 2011Q2

REPORT INFORMATION
  Report Type: 
  Country: None (occurrence: None)
  Receive Date: 20110627
  Receipt Date: 20110310
  Transmission Date: 20111010
  Serious: No
  Sender: FDA-Public Use
  Company Number: A0917566A

PATIENT
  Age: 54 Year
  Sex: Female

DRUGS (3)
  1. LAMICTAL [Suspect]
     Indication: EPILEPSY
     Dosage: 50MG PER DAY
     Dates: start: 20110222, end: 20110301
  2. BUSPAR [Concomitant]
  3. DILANTIN [Concomitant]

REACTIONS (5)
  - PALPITATIONS [None]
  - NERVOUSNESS [None]
  - ABNORMAL SENSATION IN EYE [None]
  - PANIC ATTACK [None]
  - MENTAL IMPAIRMENT [None]
